FAERS Safety Report 9114908 (Version 1)
Quarter: 2013Q1

REPORT INFORMATION
  Report Type: Spontaneous
  Country: FR (occurrence: None)
  Receive Date: 20130123
  Receipt Date: 20130123
  Transmission Date: 20140127
  Serious: Yes (Other)
  Sender: FDA-Public Use
  Company Number: ALB-007-12-FR

PATIENT
  Age: 83 Year
  Sex: Female

DRUGS (9)
  1. ALBUNORM [Suspect]
     Indication: MARASMUS
     Route: 042
     Dates: start: 20120323, end: 20120325
  2. EUPANTOL [Suspect]
     Indication: GASTRITIS
     Route: 042
     Dates: start: 20120323, end: 20120325
  3. LACTULOSE [Concomitant]
  4. NICARDIPINE [Concomitant]
  5. FLUCONAZOLE [Concomitant]
  6. FUROSEMIDE [Concomitant]
  7. IPRATROPIUM [Concomitant]
  8. SALBUTAMOL [Concomitant]
  9. HEPARIN CALCIUM [Concomitant]

REACTIONS (1)
  - Urticaria [None]
